FAERS Safety Report 4507421-7 (Version None)
Quarter: 2004Q4

REPORT INFORMATION
  Report Type: 
  Country: None (occurrence: None)
  Receive Date: 20041118
  Receipt Date: 20041108
  Transmission Date: 20050328
  Serious: Yes (Other)
  Sender: FDA-Public Use
  Company Number: 200410031

PATIENT
  Sex: Female

DRUGS (1)
  1. BOTOX COSMETIC [Suspect]
     Indication: SKIN WRINKLING

REACTIONS (4)
  - ARTHRALGIA [None]
  - ASTHENIA [None]
  - GUILLAIN-BARRE SYNDROME [None]
  - PAIN IN EXTREMITY [None]
